FAERS Safety Report 16181409 (Version 2)
Quarter: 2019Q2

REPORT INFORMATION
  Report Type: Spontaneous
  Country: US (occurrence: US)
  Receive Date: 20190410
  Receipt Date: 20190423
  Transmission Date: 20190711
  Serious: Yes (Death, Hospitalization, Other)
  Sender: FDA-Public Use
  Company Number: US-UNITED THERAPEUTICS-UNT-2019-006440

PATIENT
  Age: 60 Year
  Sex: Male
  Weight: 57.6 kg

DRUGS (3)
  1. REVATIO [Concomitant]
     Active Substance: SILDENAFIL CITRATE
     Indication: PRODUCT USED FOR UNKNOWN INDICATION
     Route: 065
  2. TYVASO [Suspect]
     Active Substance: TREPROSTINIL
     Indication: PULMONARY ARTERIAL HYPERTENSION
     Dosage: 18-54 ?G, QID
     Dates: start: 20180207
  3. TYVASO [Suspect]
     Active Substance: TREPROSTINIL
     Dosage: 60-120 MICROGRAMS, QID

REACTIONS (7)
  - Off label use [Unknown]
  - Staphylococcal infection [Unknown]
  - Cardiac failure [Unknown]
  - Respiratory failure [Unknown]
  - Death [Fatal]
  - Cyanosis [Unknown]
  - Localised infection [Unknown]

NARRATIVE: CASE EVENT DATE: 20190401
